FAERS Safety Report 7462888-X (Version None)
Quarter: 2011Q2

REPORT INFORMATION
  Report Type: 
  Country: None (occurrence: None)
  Receive Date: 20110506
  Receipt Date: 20081006
  Transmission Date: 20111010
  Serious: Yes (Death, Hospitalization, Other)
  Sender: FDA-Public Use
  Company Number: US-BAYER-200835128NA

PATIENT
  Age: 64 Year
  Sex: Male
  Weight: 85.261 kg

DRUGS (22)
  1. GLUCOTROL [Concomitant]
     Dosage: 20 MG, BID
     Route: 048
     Dates: end: 20050101
  2. RED BLOOD CELLS [Concomitant]
     Dosage: 2 U, UNK
     Dates: start: 20051010
  3. VANCOMYCIN [Concomitant]
     Dosage: 1.5 G, QD
     Dates: start: 20051014
  4. AVANDIA [Concomitant]
     Indication: DIABETES MELLITUS
     Dosage: UNK
     Dates: start: 20030101, end: 20050101
  5. TRASYLOL [Suspect]
     Dosage: 50 CC/HR
     Route: 042
     Dates: start: 20051010, end: 20051010
  6. TRASYLOL [Suspect]
     Indication: TRANSMYOCARDIAL REVASCULARISATION
     Dosage: 200 ML
     Route: 042
     Dates: start: 20051010, end: 20051010
  7. LOPID [Concomitant]
     Dosage: 600 MG, QD
     Route: 048
     Dates: start: 20050101
  8. ZOSYN [Concomitant]
     Dosage: 4.5 G, TID
     Dates: start: 20051012
  9. TRASYLOL [Suspect]
     Indication: CORONARY ARTERY BYPASS
     Dosage: 1 ML TEST DOSE
     Route: 042
     Dates: start: 20051010, end: 20051010
  10. LORCET-HD [Concomitant]
     Dosage: 5 MG, UNK
     Route: 048
  11. LEVAQUIN [Concomitant]
     Dosage: 500 MG, ONE TIME DOSE
     Route: 042
     Dates: start: 20051006
  12. LEVAQUIN [Concomitant]
     Dosage: 500 MG, QD
     Route: 048
     Dates: start: 20051006, end: 20051010
  13. NICARDIPINE HCL [Concomitant]
     Dosage: UNK
     Dates: start: 20051010
  14. HEPARIN [Concomitant]
     Dosage: UNK
     Dates: start: 20051010
  15. IMDUR [Concomitant]
     Dosage: 30 MG, QD
     Dates: start: 20051007
  16. VASOTEC [Concomitant]
     Dosage: UNK
     Dates: end: 20051014
  17. RED BLOOD CELLS [Concomitant]
     Indication: CORONARY ARTERY BYPASS
     Dosage: 2 U, UNK
     Dates: start: 20051012
  18. NAPROSYN [Concomitant]
  19. ACETYLSALICYLIC ACID SRT [Concomitant]
     Dosage: 81 MG, QD
     Route: 048
  20. SYNTHROID [Concomitant]
     Dosage: 0.05 MG, QD
     Route: 048
  21. FUROSEMIDE [Concomitant]
     Dosage: UNK
     Dates: start: 20051010
  22. AMIODARONE [Concomitant]
     Dosage: UNK
     Dates: start: 20051010

REACTIONS (9)
  - INJURY [None]
  - FEAR [None]
  - PAIN [None]
  - RENAL FAILURE [None]
  - ANXIETY [None]
  - UNEVALUABLE EVENT [None]
  - DEPRESSION [None]
  - DEATH [None]
  - ANHEDONIA [None]
